FAERS Safety Report 6689469-X (Version None)
Quarter: 2010Q2

REPORT INFORMATION
  Report Type: 
  Country: None (occurrence: None)
  Receive Date: 20100421
  Receipt Date: 20100420
  Transmission Date: 20101027
  Serious: Yes (Other)
  Sender: FDA-Public Use
  Company Number: US-RB-007396-10

PATIENT
  Age: 63 Year
  Sex: Female

DRUGS (1)
  1. MUCINEX DM [Suspect]
     Dosage: TOOK ONE TABLET LAST NIGHT
     Route: 048
     Dates: start: 20100419

REACTIONS (3)
  - EPISTAXIS [None]
  - MUCOSAL DRYNESS [None]
  - SINUS DISORDER [None]
